FAERS Safety Report 7097780-6 (Version None)
Quarter: 2010Q4

REPORT INFORMATION
  Report Type: 
  Country: None (occurrence: None)
  Receive Date: 20101112
  Receipt Date: 20101108
  Transmission Date: 20110411
  Serious: Yes (Hospitalization, Other)
  Sender: FDA-Public Use
  Company Number: US-ELI_LILLY_AND_COMPANY-US201009005978

PATIENT
  Sex: Male

DRUGS (5)
  1. HUMALOG [Suspect]
     Indication: TYPE 1 DIABETES MELLITUS
     Dosage: UNK, AS NEEDED
     Route: 058
     Dates: start: 19980101
  2. HUMALOG [Suspect]
     Dosage: UNK, AS NEEDED
     Route: 058
     Dates: start: 19980101
  3. HUMALOG [Suspect]
     Dosage: UNK, AS NEEDED
     Route: 058
     Dates: start: 19980101
  4. LANTUS [Concomitant]
  5. NOVOPEN [Concomitant]

REACTIONS (8)
  - BLOOD GLUCOSE DECREASED [None]
  - BLOOD GLUCOSE INCREASED [None]
  - DIABETIC KETOACIDOSIS [None]
  - DRY MOUTH [None]
  - POLLAKIURIA [None]
  - THIRST [None]
  - VOMITING [None]
  - WRONG TECHNIQUE IN DRUG USAGE PROCESS [None]
